FAERS Safety Report 23401469 (Version 5)
Quarter: 2024Q2

REPORT INFORMATION
  Report Type: Report from Study
  Country: US (occurrence: US)
  Receive Date: 20240115
  Receipt Date: 20240524
  Transmission Date: 20240716
  Serious: Yes (Other)
  Sender: FDA-Public Use
  Company Number: US-002147023-NVSC2024US005890

PATIENT
  Sex: Female

DRUGS (1)
  1. KESIMPTA [Suspect]
     Active Substance: OFATUMUMAB
     Indication: Multiple sclerosis
     Dosage: 20 MG, OTHER (ONCE A WEEK FOR 3 WEEKS,SKIN 4TH WEEKS THEN AT 5TH WEEK BEGIN MONTHLY)
     Route: 058
     Dates: start: 20231207

REACTIONS (6)
  - Multiple sclerosis relapse [Recovered/Resolved]
  - Optic neuritis [Unknown]
  - Muscle spasticity [Recovered/Resolved]
  - Muscle strength abnormal [Unknown]
  - Grip strength decreased [Unknown]
  - Inappropriate schedule of product administration [Recovered/Resolved]
